FAERS Safety Report 8962307 (Version 2)
Quarter: 2013Q1

REPORT INFORMATION
  Report Type: Spontaneous
  Country: US (occurrence: None)
  Receive Date: 20121203
  Receipt Date: 20121210
  Transmission Date: 20140127
  Serious: Yes (Other)
  Sender: FDA-Public Use
  Company Number: ACO_33107_2012

PATIENT
  Age: 43 Year
  Sex: Male
  Weight: 86.2 kg

DRUGS (2)
  1. AMPYRA (DALFAMPRIDINE) TABLET, 10MG [Suspect]
     Indication: GAIT DISTURBANCE
     Dosage: Q 12 HRS
     Route: 048
     Dates: start: 201006, end: 201102
  2. BETASSERON (ALBUMIN HUMAN, GLUCOSE, INTERFERON BETA) [Concomitant]

REACTIONS (6)
  - Loss of consciousness [None]
  - Eye movement disorder [None]
  - Loss of consciousness [None]
  - Fall [None]
  - Memory impairment [None]
  - Dizziness [None]
